FAERS Safety Report 15261311 (Version 1)
Quarter: 2018Q3

REPORT INFORMATION
  Report Type: Report from Study
  Country: US (occurrence: US)
  Receive Date: 20180809
  Receipt Date: 20180809
  Transmission Date: 20181010
  Serious: Yes (Other)
  Sender: FDA-Public Use
  Company Number: US-VIIV HEALTHCARE LIMITED-US2018143519

PATIENT
  Age: 61 Year
  Sex: Female

DRUGS (5)
  1. DEXAMETHASONE. [Suspect]
     Active Substance: DEXAMETHASONE
     Indication: IMMUNOSUPPRESSANT DRUG THERAPY
     Dosage: FOR FIRST TWO WEEKS
     Route: 042
  2. ZIDOVUDINE. [Suspect]
     Active Substance: ZIDOVUDINE
     Indication: IMMUNOSUPPRESSANT DRUG THERAPY
     Dosage: 1500 MG, UNK
     Route: 042
  3. ZIDOVUDINE. [Suspect]
     Active Substance: ZIDOVUDINE
     Dosage: MAINTENANCE DOSE
     Route: 048
  4. GANCICLOVIR. [Suspect]
     Active Substance: GANCICLOVIR
     Indication: IMMUNOSUPPRESSANT DRUG THERAPY
     Dosage: 5 MG/KG, UNK
     Route: 042
  5. RITUXIMAB. [Suspect]
     Active Substance: RITUXIMAB
     Indication: IMMUNOSUPPRESSANT DRUG THERAPY
     Dosage: ON DAYS 1, 8, 15, AND 22
     Route: 042

REACTIONS (3)
  - Vomiting [Unknown]
  - Acute kidney injury [Unknown]
  - Nausea [Unknown]
